FAERS Safety Report 10671985 (Version 1)
Quarter: 2014Q4

REPORT INFORMATION
  Report Type: Spontaneous
  Country: US (occurrence: US)
  Receive Date: 20141223
  Receipt Date: 20141223
  Transmission Date: 20150529
  Serious: No
  Sender: FDA-Public Use
  Company Number: US-PFIZER INC-2014348265

PATIENT
  Age: 52 Year
  Sex: Male

DRUGS (2)
  1. CABERGOLINE. [Suspect]
     Active Substance: CABERGOLINE
     Dosage: 5 TO 7 TABLETS PER WEEK
  2. CABERGOLINE. [Suspect]
     Active Substance: CABERGOLINE
     Indication: ACROMEGALY
     Dosage: 9 TABLETS PER WEEK

REACTIONS (2)
  - Affect lability [Unknown]
  - Depression [Unknown]
